FAERS Safety Report 23907873 (Version 1)
Quarter: 2024Q2

REPORT INFORMATION
  Report Type: Spontaneous
  Country: US (occurrence: US)
  Receive Date: 20240528
  Receipt Date: 20240528
  Transmission Date: 20240715
  Serious: Yes (Hospitalization, Other)
  Sender: FDA-Public Use
  Company Number: US-BRISTOL-MYERS SQUIBB COMPANY-2024-078052

PATIENT
  Age: 75 Year
  Sex: Female

DRUGS (28)
  1. REVLIMID [Suspect]
     Active Substance: LENALIDOMIDE
     Indication: Plasma cell myeloma
     Route: 048
     Dates: start: 20211224, end: 202404
  2. REVLIMID [Suspect]
     Active Substance: LENALIDOMIDE
     Dosage: TAKE 1 CAPSULE BY MOUTH DAILY FOR 14DAYS THEN 7DAYS OFF EVERY 21DAY CYCLE
     Route: 048
  3. ACYCLOVIR [Concomitant]
     Active Substance: ACYCLOVIR
     Dosage: TAKE 1 CAP BY MOUTH TWICE DAILY EVERY DAY WHILE TAKING CHEMO
  4. ALBUTEROL SULFATE [Concomitant]
     Active Substance: ALBUTEROL SULFATE
     Dosage: TAKE 2 PUFFS BY MOUTH EVERY 4HR(200 PUFFS) 8.5GM
  5. ALLOPURINOL [Concomitant]
     Active Substance: ALLOPURINOL
     Route: 048
  6. AMLODIPINE BESYLATE [Concomitant]
     Active Substance: AMLODIPINE BESYLATE
  7. AMOXICILLIN\CLAVULANIC ACID [Concomitant]
     Active Substance: AMOXICILLIN\CLAVULANIC ACID
  8. AZELASTINE [Concomitant]
     Active Substance: AZELASTINE\AZELASTINE HYDROCHLORIDE
     Dosage: INSTALL 1 DROP IN AFFECTED EYE(S) TWICE DAILY
     Route: 047
  9. CETIRIZINE HYDROCHLORIDE [Concomitant]
     Active Substance: CETIRIZINE HYDROCHLORIDE
  10. COMIRNATY [Concomitant]
     Dosage: 12+(COVID)23-24 PFS, ADMINISTERED 0.3ML IN THE MUSCLE AS DIRECTED TODAY
  11. DICLOFENAC SODIUM [Concomitant]
     Active Substance: DICLOFENAC\DICLOFENAC SODIUM
     Dosage: DR
  12. FERROUS SULFATE [Concomitant]
     Active Substance: FERROUS SULFATE
     Dosage: 325MG (5GR) TABS
  13. FLUAD NOS [Concomitant]
     Active Substance: INFLUENZA VIRUS VACCINE
     Dosage: 65+ PF INJ, 2023-240.5ML, 0.5ML IN MUSCLE
  14. GABAPENTIN [Concomitant]
     Active Substance: GABAPENTIN
     Dosage: TAKE 2 CAPSULES BY MOUTH AT BEDTIME
     Route: 048
  15. METHYLPREDNISOLONE [Concomitant]
     Active Substance: METHYLPREDNISOLONE
     Dosage: 4MG DOSPAK 21S
  16. MONTELUKAST [Concomitant]
     Active Substance: MONTELUKAST SODIUM
     Dosage: AT BEDTIME
  17. MUPIROCIN [Concomitant]
     Active Substance: MUPIROCIN
     Dosage: APPLY SMALL AMOUNT TOPICALLY TO THE AFFECTED AREA THREE TIMES DAILY
  18. OFLOXACIN [Concomitant]
     Active Substance: OFLOXACIN
     Dosage: DO NOT OPEN PRIOR TO SURGERY - BRING BOTTLE TO SURGERY APPT. INSTALL 1 DROP IN RIGHT EYE 4 TIMES DAI
  19. OSELTAMIVIR [Concomitant]
     Active Substance: OSELTAMIVIR
  20. PANTOPRAZOLE [Concomitant]
     Active Substance: PANTOPRAZOLE
     Route: 048
  21. PIOGLITAZONE [Concomitant]
     Active Substance: PIOGLITAZONE
  22. POTASSIUM CHLORIDE [Concomitant]
     Active Substance: POTASSIUM CHLORIDE
     Dosage: TAKE 2 TABLETS BY MOUTH DAILY
     Route: 048
  23. POTASSIUM CHLORIDE [Concomitant]
     Active Substance: POTASSIUM CHLORIDE
     Dosage: TAKE 1 TABLETS BY MOUTH DAILY
     Route: 048
  24. POTASSIUM CHLORIDE [Concomitant]
     Active Substance: POTASSIUM CHLORIDE
     Dosage: TAKE 3 TABLETS BY MOUTH DAILY
     Route: 048
  25. POTASSIUM CHLORIDE [Concomitant]
     Active Substance: POTASSIUM CHLORIDE
     Dosage: TAKE 3 TABLETS BY MOUTH DAILY
     Route: 048
  26. REPAGLINIDE [Concomitant]
     Active Substance: REPAGLINIDE
     Dosage: TAKE 1 TAB 3 TIMES DAILY BEFORE 15-30MIN MEALS
     Route: 048
  27. ROSUVASTATIN [Concomitant]
     Active Substance: ROSUVASTATIN
  28. ABRYSVO [Concomitant]
     Active Substance: RECOMBINANT STABILIZED RSV A PREFUSION F ANTIGEN\RECOMBINANT STABILIZED RSV B PREFUSION F ANTIGEN
     Dosage: 5-PACK
     Route: 030

REACTIONS (4)
  - Diabetes mellitus [Unknown]
  - Limb injury [Unknown]
  - Impaired healing [Unknown]
  - Off label use [Unknown]

NARRATIVE: CASE EVENT DATE: 20240401
